FAERS Safety Report 5828841-4 (Version None)
Quarter: 2008Q3

REPORT INFORMATION
  Report Type: 
  Country: None (occurrence: None)
  Receive Date: 20080731
  Receipt Date: 20080724
  Transmission Date: 20090109
  Serious: Yes (Death)
  Sender: FDA-Public Use
  Company Number: FR-GENENTECH-265191

PATIENT
  Age: 69 Year
  Sex: Male

DRUGS (3)
  1. ACTIVASE [Suspect]
     Indication: BASILAR ARTERY THROMBOSIS
     Dosage: 20 MG, UNK
     Route: 013
  2. HEPARIN [Suspect]
     Indication: BASILAR ARTERY THROMBOSIS
     Dosage: 50 IU/KG, UNK
     Route: 042
  3. HEPARIN [Suspect]
     Dosage: 200 IU/KG, UNK
     Route: 042

REACTIONS (1)
  - DEATH [None]
